FAERS Safety Report 17329718 (Version 1)
Quarter: 2020Q1

REPORT INFORMATION
  Report Type: Spontaneous
  Country: US (occurrence: US)
  Receive Date: 20200127
  Receipt Date: 20200127
  Transmission Date: 20200409
  Serious: Yes (Hospitalization)
  Sender: FDA-Public Use
  Company Number: None

PATIENT
  Age: 79 Year
  Sex: Male
  Weight: 105.8 kg

DRUGS (1)
  1. ABEMACICLIB [Suspect]
     Active Substance: ABEMACICLIB
     Indication: BLADDER CANCER
     Dates: start: 20191029, end: 20191203

REACTIONS (5)
  - Small intestinal obstruction [None]
  - Abdominal pain [None]
  - Nausea [None]
  - Vomiting [None]
  - Atrial fibrillation [None]

NARRATIVE: CASE EVENT DATE: 20200123
